FAERS Safety Report 6123121-4 (Version None)
Quarter: 2009Q1

REPORT INFORMATION
  Report Type: 
  Country: None (occurrence: None)
  Receive Date: 20090318
  Receipt Date: 20090311
  Transmission Date: 20090719
  Serious: Yes (Death, Hospitalization)
  Sender: FDA-Public Use
  Company Number: US-GILEAD-2009-0020820

PATIENT
  Sex: Male
  Weight: 106.69 kg

DRUGS (14)
  1. LETAIRIS [Suspect]
     Indication: PULMONARY ARTERIAL HYPERTENSION
     Route: 048
     Dates: start: 20080411
  2. REMODULIN [Concomitant]
  3. PREZISTA [Concomitant]
  4. WARFARIN SODIUM [Concomitant]
  5. ALLOPURINOL [Concomitant]
  6. NORVIR [Concomitant]
  7. VIREAD [Concomitant]
  8. POTASSIUM CHLORIDE [Concomitant]
  9. RETROVIR [Concomitant]
  10. EPIVIR [Concomitant]
  11. PRILOSEC [Concomitant]
  12. GLIPIZIDE [Concomitant]
  13. LUMIGAN [Concomitant]
  14. MARAVIROC [Concomitant]

REACTIONS (2)
  - CARDIAC FAILURE CONGESTIVE [None]
  - FLUID OVERLOAD [None]
